FAERS Safety Report 4953388-7 (Version None)
Quarter: 2006Q1

REPORT INFORMATION
  Report Type: 
  Country: None (occurrence: None)
  Receive Date: 20060127
  Receipt Date: 20050318
  Transmission Date: 20060701
  Serious: Yes (Other)
  Sender: FDA-Public Use
  Company Number: 05-03-0463

PATIENT
  Age: 59 Year
  Sex: Female
  Weight: 72.5755 kg

DRUGS (3)
  1. CLOZAPINE [Suspect]
     Indication: BIPOLAR DISORDER
     Dosage: 75MG BID, ORAL
     Route: 048
     Dates: start: 20050115, end: 20050317
  2. CLOZAPINE [Suspect]
     Indication: SCHIZOAFFECTIVE DISORDER
     Dosage: 75MG BID, ORAL
     Route: 048
     Dates: start: 20050115, end: 20050317
  3. DEPAKOTE [Concomitant]

REACTIONS (1)
  - AGRANULOCYTOSIS [None]
